FAERS Safety Report 12552698 (Version 1)
Quarter: 2016Q3

REPORT INFORMATION
  Report Type: Spontaneous
  Country: BR (occurrence: BR)
  Receive Date: 20160713
  Receipt Date: 20160713
  Transmission Date: 20161109
  Serious: Yes (Other)
  Sender: FDA-Public Use
  Company Number: BR-PFIZER INC-2016334079

PATIENT
  Age: 47 Year
  Sex: Male
  Weight: 70 kg

DRUGS (9)
  1. CARVEDILOL. [Concomitant]
     Active Substance: CARVEDILOL
     Indication: CARDIAC FAILURE
     Dosage: 6.25 MG, 2X/DAY
     Route: 048
     Dates: start: 201512
  2. CAAS [Concomitant]
     Indication: BLOOD VISCOSITY ABNORMAL
     Dosage: 100 MG, 1X/DAY
     Route: 048
     Dates: start: 201512
  3. METFORMIN HYDROCHLORIDE. [Concomitant]
     Active Substance: METFORMIN HYDROCHLORIDE
     Indication: DIABETES MELLITUS
     Dosage: UNK, 1X/DAY
     Route: 048
     Dates: start: 201512
  4. BEZAFIBRATE [Concomitant]
     Active Substance: BEZAFIBRATE
     Indication: BLOOD TRIGLYCERIDES
     Dosage: 200 MG, 1X/DAY
     Route: 048
     Dates: start: 201512
  5. LIPITOR [Suspect]
     Active Substance: ATORVASTATIN CALCIUM
     Indication: BLOOD CHOLESTEROL ABNORMAL
     Dosage: 1 TABLET OF STRENGTH 80 MG, AT NIGHT
     Route: 048
     Dates: start: 20150912
  6. LOSARTAN. [Concomitant]
     Active Substance: LOSARTAN
     Indication: HYPERTENSION
     Dosage: 50 MG, DAILY (25 MG TWO DAILY)
     Route: 048
     Dates: start: 201512
  7. ISOSORBIDE MONONITRATE. [Concomitant]
     Active Substance: ISOSORBIDE MONONITRATE
     Indication: ANGINA PECTORIS
     Dosage: 20 MG, 3X/DAY
     Route: 048
     Dates: start: 201512
  8. ENALAPRIL MALEATE. [Concomitant]
     Active Substance: ENALAPRIL MALEATE
     Indication: HYPERTENSION
     Dosage: 50 MG, DAILY (25 MG TWO DAILY )
     Route: 048
     Dates: start: 201512
  9. CLOPIDOGREL [Concomitant]
     Active Substance: CLOPIDOGREL BISULFATE
     Indication: ANTICOAGULANT THERAPY
     Dosage: 75 MG, 1X/DAY
     Route: 048
     Dates: start: 201601

REACTIONS (4)
  - Acute myocardial infarction [Unknown]
  - Pancreatitis acute [Unknown]
  - Coronary artery disease [Unknown]
  - Acute myocardial infarction [Unknown]

NARRATIVE: CASE EVENT DATE: 20151227
